FAERS Safety Report 19814179 (Version 1)
Quarter: 2021Q3

REPORT INFORMATION
  Report Type: Spontaneous
  Country: CA (occurrence: CA)
  Receive Date: 20210910
  Receipt Date: 20210910
  Transmission Date: 20211014
  Serious: Yes (Hospitalization)
  Sender: FDA-Public Use
  Company Number: CA-TEVA-2021-CA-1949374

PATIENT
  Age: 36 Year
  Sex: Female
  Weight: 80 kg

DRUGS (2)
  1. TEVA?GABAPENTIN [Suspect]
     Active Substance: GABAPENTIN
     Indication: FACIAL NEURALGIA
     Dosage: 600 MILLIGRAM DAILY;
     Route: 048
  2. APO?LAMOTRIGINE [Suspect]
     Active Substance: LAMOTRIGINE
     Indication: FACIAL NEURALGIA
     Dosage: 100 MILLIGRAM DAILY;
     Route: 048

REACTIONS (3)
  - Arthralgia [Recovered/Resolved]
  - Myalgia [Recovered/Resolved]
  - Rash pruritic [Recovered/Resolved]
